FAERS Safety Report 23765710 (Version 2)
Quarter: 2025Q1

REPORT INFORMATION
  Report Type: Spontaneous
  Country: FR (occurrence: FR)
  Receive Date: 20240421
  Receipt Date: 20250313
  Transmission Date: 20250409
  Serious: Yes (Other)
  Sender: AUROBINDO
  Company Number: FR-CHEPLA-2024004241

PATIENT
  Age: 45 Year
  Sex: Male

DRUGS (12)
  1. HYDROXYUREA [Suspect]
     Active Substance: HYDROXYUREA
     Indication: Myelofibrosis
     Route: 065
  2. VALGANCICLOVIR [Suspect]
     Active Substance: VALGANCICLOVIR
     Indication: Cytomegalovirus infection reactivation
     Route: 065
  3. BUSULFAN [Concomitant]
     Active Substance: BUSULFAN
     Indication: Myelofibrosis
     Route: 042
  4. ETOPOSIDE [Concomitant]
     Active Substance: ETOPOSIDE
     Indication: Myelofibrosis
     Route: 065
  5. TREOSULFAN [Concomitant]
     Active Substance: TREOSULFAN
     Indication: Product used for unknown indication
     Dosage: 10 GRAM PER SQUARE METRE, ONCE A DAY
     Route: 065
  6. FLUDARABINE [Concomitant]
     Active Substance: FLUDARABINE PHOSPHATE
     Indication: Myelofibrosis
     Route: 065
  7. FLUDARABINE [Concomitant]
     Active Substance: FLUDARABINE PHOSPHATE
     Route: 065
  8. GRAFALON [Concomitant]
     Active Substance: LAPINE T-LYMPHOCYTE IMMUNE GLOBULIN
     Indication: Product used for unknown indication
     Route: 065
  9. CYTARABINE\DAUNORUBICIN [Concomitant]
     Active Substance: CYTARABINE\DAUNORUBICIN
     Indication: Product used for unknown indication
     Dosage: 29 MILLIGRAM/SQ. METER, ONCE A DAY (CONSOLIDATION THERAPY)
     Route: 065
  10. CYTARABINE\DAUNORUBICIN [Concomitant]
     Active Substance: CYTARABINE\DAUNORUBICIN
     Dosage: 44 MILLIGRAM/SQ. METER, ONCE A DAY (INDUCTION THERAPY, ON DAYS 1, 3, AND 5)
     Route: 065
  11. CYCLOPHOSPHAMIDE [Concomitant]
     Active Substance: CYCLOPHOSPHAMIDE
     Indication: Myelofibrosis
     Route: 065
  12. THIOTEPA [Concomitant]
     Active Substance: THIOTEPA
     Indication: Myelofibrosis
     Route: 065

REACTIONS (8)
  - Graft versus host disease [Recovering/Resolving]
  - Cytomegalovirus infection reactivation [Recovered/Resolved]
  - Pneumonitis [Recovered/Resolved]
  - Acute myeloid leukaemia [Unknown]
  - Pneumonia [Recovered/Resolved]
  - Congenital aplasia [Unknown]
  - Paronychia [Recovered/Resolved]
  - Off label use [Unknown]
